FAERS Safety Report 17545184 (Version 1)
Quarter: 2020Q1

REPORT INFORMATION
  Report Type: Spontaneous
  Country: US (occurrence: US)
  Receive Date: 20200314
  Receipt Date: 20200314
  Transmission Date: 20200409
  Serious: Yes (Hospitalization)
  Sender: FDA-Public Use
  Company Number: None

PATIENT
  Sex: Female

DRUGS (22)
  1. DIFLUCAN [Concomitant]
     Active Substance: FLUCONAZOLE
  2. INSULIN [Concomitant]
     Active Substance: INSULIN NOS
  3. IRON [Concomitant]
     Active Substance: IRON
  4. AZMACORT [Concomitant]
     Active Substance: TRIAMCINOLONE ACETONIDE
  5. BACLOFEN. [Concomitant]
     Active Substance: BACLOFEN
  6. HEPARIN [Concomitant]
     Active Substance: HEPARIN SODIUM
  7. IRON [Concomitant]
     Active Substance: IRON
  8. AMBIEN [Concomitant]
     Active Substance: ZOLPIDEM TARTRATE
  9. GABAPENTIN. [Concomitant]
     Active Substance: GABAPENTIN
  10. GLATIRAMER [Suspect]
     Active Substance: GLATIRAMER
     Indication: MULTIPLE SCLEROSIS
     Dosage: ?          OTHER FREQUENCY:THREE TIMES WEEKLY;?
     Route: 058
     Dates: start: 20171129
  11. AMPHETAMINE [Concomitant]
     Active Substance: AMPHETAMINE
  12. HIPREX [Concomitant]
     Active Substance: METHENAMINE HIPPURATE
  13. ISOSORB [Concomitant]
  14. CEPHALEXIN. [Concomitant]
     Active Substance: CEPHALEXIN
  15. ADDERALL [Concomitant]
     Active Substance: AMPHETAMINE ASPARTATE\AMPHETAMINE SULFATE\DEXTROAMPHETAMINE SACCHARATE\DEXTROAMPHETAMINE SULFATE
  16. ASPIRIN. [Concomitant]
     Active Substance: ASPIRIN
  17. ALBUTEROL. [Concomitant]
     Active Substance: ALBUTEROL
  18. BIAXIN [Concomitant]
     Active Substance: CLARITHROMYCIN
  19. FUROSEMIDE. [Concomitant]
     Active Substance: FUROSEMIDE
  20. CALCIUM [Concomitant]
     Active Substance: CALCIUM
  21. CENTRUM [Concomitant]
     Active Substance: VITAMINS
  22. LISINOPRIL. [Concomitant]
     Active Substance: LISINOPRIL

REACTIONS (1)
  - Cyst removal [None]
